FAERS Safety Report 21243578 (Version 1)
Quarter: 2022Q3

REPORT INFORMATION
  Report Type: Spontaneous
  Country: US (occurrence: None)
  Receive Date: 20220822
  Receipt Date: 20220822
  Transmission Date: 20221027
  Serious: Yes (Other)
  Sender: FDA-Public Use
  Company Number: None

PATIENT
  Age: 77 Year
  Sex: Female
  Weight: 77.5 kg

DRUGS (1)
  1. PAXLOVID [Suspect]
     Active Substance: NIRMATRELVIR\RITONAVIR
     Route: 048
     Dates: start: 20220818, end: 20220821

REACTIONS (4)
  - Nausea [None]
  - Diarrhoea [None]
  - Intestinal ischaemia [None]
  - Embolism [None]

NARRATIVE: CASE EVENT DATE: 20220822
